FAERS Safety Report 11713500 (Version 2)
Quarter: 2015Q4

REPORT INFORMATION
  Report Type: Report from Study
  Country: CA (occurrence: CA)
  Receive Date: 20151109
  Receipt Date: 20151223
  Transmission Date: 20160304
  Serious: Yes (Hospitalization, Other)
  Sender: FDA-Public Use
  Company Number: CA-BEH-2015055491

PATIENT
  Age: 48 Year
  Sex: Female
  Weight: 84.7 kg

DRUGS (1)
  1. HIZENTRA [Suspect]
     Active Substance: HUMAN IMMUNOGLOBULIN G
     Indication: PRIMARY IMMUNODEFICIENCY SYNDROME
     Dosage: PUSH METHOD
     Route: 058
     Dates: start: 20150928

REACTIONS (6)
  - Musculoskeletal chest pain [Not Recovered/Not Resolved]
  - Speech disorder [Not Recovered/Not Resolved]
  - Carbon dioxide increased [Not Recovered/Not Resolved]
  - Pneumonia [Not Recovered/Not Resolved]
  - Dyspnoea [Not Recovered/Not Resolved]
  - Malaise [Not Recovered/Not Resolved]

NARRATIVE: CASE EVENT DATE: 20151014
